FAERS Safety Report 18463838 (Version 2)
Quarter: 2021Q3

REPORT INFORMATION
  Report Type: Report from Study
  Country: US (occurrence: US)
  Receive Date: 20201104
  Receipt Date: 20210701
  Transmission Date: 20211014
  Serious: Yes (Hospitalization, Other)
  Sender: FDA-Public Use
  Company Number: US-TAKEDA-US201905445

PATIENT
  Age: 50 Year
  Sex: Female

DRUGS (12)
  1. TEDUGLUTIDE [Suspect]
     Active Substance: TEDUGLUTIDE
     Dosage: 1.02 MILLIGRAM, QD
     Route: 058
     Dates: start: 20180816
  2. TEDUGLUTIDE [Suspect]
     Active Substance: TEDUGLUTIDE
     Dosage: 1.23 MILLIGRAM, QOD
     Route: 058
     Dates: start: 20200513
  3. TEDUGLUTIDE [Suspect]
     Active Substance: TEDUGLUTIDE
     Dosage: 1.23 MILLIGRAM, QOD
     Route: 058
     Dates: start: 20200513
  4. TEDUGLUTIDE [Suspect]
     Active Substance: TEDUGLUTIDE
     Dosage: 1.02 MILLIGRAM, QD
     Route: 058
     Dates: start: 20180816
  5. TEDUGLUTIDE [Suspect]
     Active Substance: TEDUGLUTIDE
     Dosage: 1.02 MILLIGRAM, QD
     Route: 058
     Dates: start: 20180816
  6. TEDUGLUTIDE [Suspect]
     Active Substance: TEDUGLUTIDE
     Dosage: 1.23 MILLIGRAM, QOD
     Route: 058
     Dates: start: 20200513
  7. TEDUGLUTIDE [Suspect]
     Active Substance: TEDUGLUTIDE
     Indication: SHORT-BOWEL SYNDROME
     Dosage: 0.24 DOSAGE FORM
     Route: 065
     Dates: start: 20180824, end: 20210601
  8. TEDUGLUTIDE [Suspect]
     Active Substance: TEDUGLUTIDE
     Indication: SHORT-BOWEL SYNDROME
     Dosage: 0.24 DOSAGE FORM
     Route: 065
     Dates: start: 20180824, end: 20210601
  9. TEDUGLUTIDE [Suspect]
     Active Substance: TEDUGLUTIDE
     Indication: SHORT-BOWEL SYNDROME
     Dosage: 0.24 DOSAGE FORM
     Route: 065
     Dates: start: 20180824, end: 20210601
  10. TEDUGLUTIDE [Suspect]
     Active Substance: TEDUGLUTIDE
     Dosage: 1.02 MILLIGRAM, QD
     Route: 058
     Dates: start: 20180816
  11. TEDUGLUTIDE [Suspect]
     Active Substance: TEDUGLUTIDE
     Indication: SHORT-BOWEL SYNDROME
     Dosage: 0.24 DOSAGE FORM
     Route: 065
     Dates: start: 20180824, end: 20210601
  12. TEDUGLUTIDE [Suspect]
     Active Substance: TEDUGLUTIDE
     Dosage: 1.23 MILLIGRAM, QOD
     Route: 058
     Dates: start: 20200513

REACTIONS (3)
  - Infection [Unknown]
  - Fluid retention [Unknown]
  - Inappropriate schedule of product administration [Unknown]

NARRATIVE: CASE EVENT DATE: 20210601
